FAERS Safety Report 16641629 (Version 2)
Quarter: 2019Q4

REPORT INFORMATION
  Report Type: Report from Study
  Country: IT (occurrence: IT)
  Receive Date: 20190729
  Receipt Date: 20191003
  Transmission Date: 20200122
  Serious: Yes (Hospitalization)
  Sender: FDA-Public Use
  Company Number: IT-ACCORD-149451

PATIENT
  Age: 78 Year
  Sex: Male

DRUGS (8)
  1. MITTOVAL [Concomitant]
     Active Substance: ALFUZOSIN HYDROCHLORIDE
  2. BISOPROLOL [Concomitant]
     Active Substance: BISOPROLOL
  3. LUVION [CANRENOIC ACID] [Interacting]
     Active Substance: CANRENOIC ACID
     Indication: HYPERTENSION
     Dosage: 50 MG
     Route: 048
     Dates: start: 20190504, end: 20190522
  4. LACTULOSE. [Concomitant]
     Active Substance: LACTULOSE
  5. METFORMIN AUROBINDO [Suspect]
     Active Substance: METFORMIN HYDROCHLORIDE
     Indication: DIABETES MELLITUS
     Dosage: 1000 MG
     Route: 048
     Dates: start: 20080101, end: 20190522
  6. RAMIPRIL. [Suspect]
     Active Substance: RAMIPRIL
     Indication: HYPERTENSION
     Route: 048
     Dates: start: 20080101, end: 20190522
  7. LASIX [Interacting]
     Active Substance: FUROSEMIDE
     Indication: HYPERTENSION
     Dosage: STRENGTH: 25 MG
     Route: 048
     Dates: start: 20190405, end: 20190522
  8. PANTORC [Concomitant]
     Active Substance: PANTOPRAZOLE SODIUM
     Dosage: 20 MG

REACTIONS (6)
  - Lactic acidosis [Recovering/Resolving]
  - Syncope [Recovering/Resolving]
  - Fall [Unknown]
  - Injury [Recovering/Resolving]
  - Disorientation [Recovering/Resolving]
  - Drug interaction [Unknown]

NARRATIVE: CASE EVENT DATE: 20190521
